FAERS Safety Report 5565330-9 (Version None)
Quarter: 2007Q4

REPORT INFORMATION
  Report Type: 
  Country: None (occurrence: None)
  Receive Date: 20071218
  Receipt Date: 20030909
  Transmission Date: 20080405
  Serious: Yes (Death, Other)
  Sender: FDA-Public Use
  Company Number: US-ROCHE-346707

PATIENT
  Age: 70 Year
  Sex: Female

DRUGS (2)
  1. VERSED [Suspect]
     Indication: ANAESTHETIC PREMEDICATION
     Dosage: PATIENT RECEIVED 2 MG FIRST, THEN 2 MINUTES LATER RECEIVED 2 MG AGAIN
     Route: 065
     Dates: start: 20020101, end: 20020101
  2. DEMEROL [Concomitant]
     Dates: start: 20020101, end: 20020101

REACTIONS (4)
  - COMA [None]
  - NEOPLASM MALIGNANT [None]
  - OVERDOSE [None]
  - RESPIRATORY DEPRESSION [None]
